FAERS Safety Report 7416214-2 (Version None)
Quarter: 2011Q2

REPORT INFORMATION
  Report Type: 
  Country: None (occurrence: None)
  Receive Date: 20110414
  Receipt Date: 20110411
  Transmission Date: 20111010
  Serious: Yes (Hospitalization, Other)
  Sender: FDA-Public Use
  Company Number: US-PFIZER INC-2011020797

PATIENT
  Sex: Male

DRUGS (4)
  1. ALPRAZOLAM [Concomitant]
     Indication: ANXIETY
     Dosage: UNK
     Dates: start: 20070101
  2. ALPRAZOLAM [Concomitant]
     Indication: DEPRESSION
  3. CHANTIX [Suspect]
     Indication: SMOKING CESSATION THERAPY
     Dosage: VARENICLINE STARTER PACK
     Dates: start: 20080116, end: 20090304
  4. OXYCODONE [Concomitant]
     Indication: PAIN
     Dosage: UNK
     Dates: start: 20060101, end: 20090101

REACTIONS (7)
  - AMNESIA [None]
  - DEPRESSION [None]
  - PHYSICAL ASSAULT [None]
  - INTENTIONAL OVERDOSE [None]
  - SUICIDE ATTEMPT [None]
  - ANXIETY [None]
  - AGGRESSION [None]
